FAERS Safety Report 8229736-1 (Version None)
Quarter: 2012Q1

REPORT INFORMATION
  Report Type: 
  Country: None (occurrence: None)
  Receive Date: 20120322
  Receipt Date: 20120313
  Transmission Date: 20120608
  Serious: Yes (Death, Other)
  Sender: FDA-Public Use
  Company Number: JP-MERCK-1203USA01132

PATIENT
  Age: 60 Year
  Sex: Male

DRUGS (2)
  1. PEPCID RPD [Suspect]
     Route: 048
  2. REVLIMID [Suspect]
     Route: 065

REACTIONS (1)
  - HAEMOLYTIC ANAEMIA [None]
